FAERS Safety Report 4623486-6 (Version None)
Quarter: 2005Q1

REPORT INFORMATION
  Report Type: 
  Country: None (occurrence: None)
  Receive Date: 20050330
  Receipt Date: 20050315
  Transmission Date: 20050727
  Serious: Yes (Other)
  Sender: FDA-Public Use
  Company Number: 200510123BYL

PATIENT
  Age: 40 Year
  Sex: Male

DRUGS (9)
  1. ASPIRIN [Suspect]
     Dosage: ORAL
     Route: 048
  2. ADALAT [Suspect]
     Dosage: ORAL
     Route: 048
  3. ALDOMET [Suspect]
     Dosage: ORAL
     Route: 048
  4. PRAVASTATIN SODIUM [Suspect]
     Dosage: ORAL
     Route: 048
  5. CARVEDILOL [Suspect]
     Dosage: ORAL
     Route: 048
  6. DIART [Concomitant]
  7. FURUSEMIDE [Concomitant]
  8. RENAGEL [Concomitant]
  9. CALTAN [Concomitant]

REACTIONS (1)
  - WHITE BLOOD CELL COUNT DECREASED [None]
